FAERS Safety Report 23960160 (Version 1)
Quarter: 2024Q2

REPORT INFORMATION
  Report Type: Spontaneous
  Country: TR (occurrence: TR)
  Receive Date: 20240611
  Receipt Date: 20240611
  Transmission Date: 20240716
  Serious: Yes (Hospitalization)
  Sender: FDA-Public Use
  Company Number: TR-JNJFOC-20240356308

PATIENT
  Age: 71 Year
  Sex: Male

DRUGS (4)
  1. LENALIDOMIDE [Suspect]
     Active Substance: LENALIDOMIDE
     Indication: Plasma cell myeloma
     Dosage: MED KIT NO. 142151 MOST RECENT DOSE OF LENALIDOMIDE ADMINISTRATIONPRIOR TO EVENT WAS ON 16-APR-20
     Route: 048
  2. DARATUMUMAB [Suspect]
     Active Substance: DARATUMUMAB
     Indication: Plasma cell myeloma
     Dosage: MED KIT NO. 25541 MOST RECENT DOSE OF DARATUMUMAB ADMINISTRATION PRIOR TO EVENT WAS ON 05-MAR-2024
     Route: 058
     Dates: start: 20190520
  3. DEXAMETHASONE [Concomitant]
     Active Substance: DEXAMETHASONE
     Indication: Plasma cell myeloma
     Dosage: MED KIT NO. 41381 MOST RECENT DOSE OF DEXAMETHASONE ADMINISTRATION PRIOR TO EVENT WAS ON 05-MAR-202
     Dates: start: 20190520
  4. BORTEZOMIB [Concomitant]
     Active Substance: BORTEZOMIB
     Indication: Plasma cell myeloma
     Dosage: MED KIT NO. 52363-02MOST RECENT DOSE OF BORTEZOMIB WAS ADMINISTRATION PRIOR TO EVENT WAS ON 04-JUL
     Dates: start: 20190520

REACTIONS (1)
  - Cholelithiasis [Recovered/Resolved]

NARRATIVE: CASE EVENT DATE: 20240313
